FAERS Safety Report 17209345 (Version 1)
Quarter: 2019Q4

REPORT INFORMATION
  Report Type: Spontaneous
  Country: US (occurrence: US)
  Receive Date: 20191227
  Receipt Date: 20191227
  Transmission Date: 20200122
  Serious: Yes (Other)
  Sender: FDA-Public Use
  Company Number: US-INDIVIOR LIMITED-INDV-122138-2019

PATIENT
  Age: 30 Year
  Sex: Female

DRUGS (1)
  1. SUBLOCADE [Suspect]
     Active Substance: BUPRENORPHINE
     Indication: PRODUCT USED FOR UNKNOWN INDICATION
     Dosage: 300 MILLIGRAM, QMO
     Route: 058
     Dates: start: 20191014

REACTIONS (4)
  - Injection site erythema [Recovering/Resolving]
  - Injection site irritation [Recovering/Resolving]
  - Injection site infection [Recovering/Resolving]
  - Injection site pustule [Recovering/Resolving]

NARRATIVE: CASE EVENT DATE: 201910
